FAERS Safety Report 9156965 (Version 1)
Quarter: 2013Q1

REPORT INFORMATION
  Report Type: Spontaneous
  Country: US (occurrence: US)
  Receive Date: 20130312
  Receipt Date: 20130312
  Transmission Date: 20140127
  Serious: Yes (Hospitalization)
  Sender: FDA-Public Use
  Company Number: US-BAYER-2013-028716

PATIENT
  Age: 44 Year
  Sex: Female
  Weight: 58.96 kg

DRUGS (17)
  1. YASMIN [Suspect]
  2. TEQUIN [Concomitant]
     Dosage: 400 MG, ONE TABLET DAILY
  3. CLARINEX [DESLORATADINE] [Concomitant]
     Dosage: 5 MG, ONE TABLET DAILY
  4. AMBIEN [Concomitant]
     Indication: INSOMNIA
     Dosage: 10 MG, PRN AT BEDTIME
  5. AUGMENTIN [Concomitant]
     Dosage: 500 MG, BID
  6. LEVAQUIN [Concomitant]
     Dosage: 500 MG, ONE TABLET DAILY
  7. PREVACID [Concomitant]
     Dosage: 30 MG, ONE TABLET DAILY
  8. FATHER HAS AN MI AND HE HAS THREE VESSEL CORONARY ARTERY BYPASS GR [Concomitant]
     Indication: FUNGAL INFECTION
     Dosage: TWICE DAILY
  9. AMOXICILLIN W/CLAVULANIC ACID [Concomitant]
     Dosage: 500 MG/125 MG, ONE TABLET TWICE A DAY
  10. DIFLUCAN [Concomitant]
     Indication: FUNGAL INFECTION
     Dosage: 15 MG, ONE TABLET
  11. MVI [Concomitant]
  12. IMITREX [Concomitant]
     Dosage: PRN
     Route: 045
  13. AMOXICILLIN [Concomitant]
     Indication: SINUSITIS
     Dosage: 500 MG, 2 TIMES DAILY
  14. FEMHRT [Concomitant]
  15. MORPHINE [Concomitant]
     Dosage: 6 MG, UNK
  16. ZOCOR [Concomitant]
     Dosage: 20 MG, UNK
  17. PROTONIX [Concomitant]

REACTIONS (1)
  - Acute myocardial infarction [Recovered/Resolved]
